FAERS Safety Report 10184723 (Version 3)
Quarter: 2014Q3

REPORT INFORMATION
  Report Type: Spontaneous
  Country: US (occurrence: None)
  Receive Date: 20140519
  Receipt Date: 20140725
  Transmission Date: 20150326
  Serious: Yes (Hospitalization)
  Sender: FDA-Public Use
  Company Number: UNT-2014-000143

PATIENT
  Age: 78 Year
  Sex: Female

DRUGS (3)
  1. XARELTO [Suspect]
     Active Substance: RIVAROXABAN
     Indication: PRODUCT USED FOR UNKNOWN INDICATION
  2. ADCIRCA [Concomitant]
     Active Substance: TADALAFIL
  3. REMODULIN [Suspect]
     Active Substance: TREPROSTINIL
     Indication: COR PULMONALE CHRONIC
     Dosage: 0.040 UG/KG/MIN, CONTINUING, IV DRIP
     Route: 041
     Dates: start: 20130620

REACTIONS (8)
  - Gastrointestinal haemorrhage [None]
  - Duodenitis [None]
  - Adverse event [None]
  - Anaemia [None]
  - Faeces discoloured [None]
  - Duodenal ulcer [None]
  - Papilloma [None]
  - Dyspnoea [None]

NARRATIVE: CASE EVENT DATE: 20140505
